FAERS Safety Report 15900744 (Version 2)
Quarter: 2019Q2

REPORT INFORMATION
  Report Type: Report from Study
  Country: DE (occurrence: DE)
  Receive Date: 20190201
  Receipt Date: 20190408
  Transmission Date: 20190711
  Serious: Yes (Other)
  Sender: FDA-Public Use
  Company Number: DE-JNJFOC-20190135994

PATIENT
  Age: 3 Decade
  Sex: Female
  Weight: 62 kg

DRUGS (4)
  1. TILIDIN [Concomitant]
     Active Substance: NALOXONE HYDROCHLORIDE\TILIDINE HYDROCHLORIDE
     Indication: AXIAL SPONDYLOARTHRITIS
     Route: 065
     Dates: start: 20170929, end: 20171019
  2. TRAMABIAN [Concomitant]
     Indication: AXIAL SPONDYLOARTHRITIS
     Route: 065
     Dates: start: 20181018
  3. SIMPONI [Suspect]
     Active Substance: GOLIMUMAB
     Indication: AXIAL SPONDYLOARTHRITIS
     Route: 058
     Dates: start: 20171019, end: 20181213
  4. METAMIZOLE [Concomitant]
     Active Substance: METAMIZOLE
     Indication: AXIAL SPONDYLOARTHRITIS
     Route: 065
     Dates: start: 20170627, end: 20170929

REACTIONS (1)
  - Drug ineffective [Not Recovered/Not Resolved]

NARRATIVE: CASE EVENT DATE: 20190125
